FAERS Safety Report 25459935 (Version 3)
Quarter: 2025Q3

REPORT INFORMATION
  Report Type: Spontaneous
  Country: CA (occurrence: CA)
  Receive Date: 20250620
  Receipt Date: 20250821
  Transmission Date: 20251020
  Serious: Yes (Other)
  Sender: Unknown Manufacturer
  Company Number: CA-862174955-ML2025-02893

PATIENT
  Sex: Male
  Weight: 101 kg

DRUGS (1)
  1. RANOLAZINE [Suspect]
     Active Substance: RANOLAZINE
     Indication: Angina pectoris
     Dosage: PRODUCT LOT #: ZXAG005/ZXAG003?PRODUCT EXP DATE: 2027/05 2026/05
     Route: 048
     Dates: start: 20250513

REACTIONS (1)
  - Angina pectoris [Unknown]
